FAERS Safety Report 15660200 (Version 1)
Quarter: 2018Q4

REPORT INFORMATION
  Report Type: Report from Study
  Country: JP (occurrence: JP)
  Receive Date: 20181127
  Receipt Date: 20181127
  Transmission Date: 20190205
  Serious: Yes (Hospitalization)
  Sender: FDA-Public Use
  Company Number: JP-ACTELION-A-CH2018-182292

PATIENT
  Age: 65 Year
  Sex: Male
  Weight: 64.2 kg

DRUGS (30)
  1. CALONAL [Concomitant]
     Active Substance: ACETAMINOPHEN
     Dosage: 200 ML, QD
     Dates: end: 20171103
  2. LAXOBERON [Concomitant]
     Active Substance: SODIUM PICOSULFATE
     Indication: CONSTIPATION
     Dosage: UNK
     Dates: start: 20171109
  3. TAKECAB [Concomitant]
     Active Substance: VONOPRAZAN FUMURATE
     Dosage: 20 MG, QD
     Dates: start: 20171214, end: 20180209
  4. DAIKENCHUTO [Concomitant]
     Active Substance: HERBALS
     Dosage: 2.5 G, QD
     Dates: start: 20171124, end: 20180209
  5. LIXIANA [Concomitant]
     Active Substance: EDOXABAN TOSYLATE
     Indication: ARRHYTHMIA
     Dosage: 60 MG, QD
     Dates: end: 20180209
  6. TOWATHIEM [Concomitant]
     Active Substance: ACETAMINOPHEN\CAFFEINE\PROMETHAZINE\SALICYLAMIDE
     Dosage: 3 G, QD
     Dates: start: 20171106, end: 20171110
  7. ROZEREM [Concomitant]
     Active Substance: RAMELTEON
     Indication: INSOMNIA
     Dosage: 8 MG, QD
     Dates: start: 20171228, end: 20180209
  8. POLYCARBOPHIL CALCIUM [Concomitant]
     Active Substance: CALCIUM POLYCARBOPHIL
     Indication: CONSTIPATION
     Dosage: 1.5 G, QD
     Dates: start: 20180113, end: 20180209
  9. PRIMIDONE. [Concomitant]
     Active Substance: PRIMIDONE
     Indication: INTENTION TREMOR
     Dosage: 500 MG, QD
     Dates: end: 20180215
  10. ASPARA POTASSIUM [Concomitant]
     Active Substance: POTASSIUM ASPARTATE
     Indication: HYPOKALAEMIA
     Dosage: 1500 MG, QD
     Dates: start: 20171212, end: 20171215
  11. TELEMINSOFT [Concomitant]
     Active Substance: BISACODYL
     Indication: CONSTIPATION
     Dosage: 10 MG, QD
     Dates: start: 20171204, end: 20171208
  12. UPTRAVI [Suspect]
     Active Substance: SELEXIPAG
     Indication: PULMONARY HYPERTENSION
     Dosage: 0.2 MG, QD
     Route: 048
     Dates: start: 20171026, end: 20171118
  13. LANSOPRAZOLE. [Concomitant]
     Active Substance: LANSOPRAZOLE
     Indication: OESOPHAGEAL CARCINOMA
     Dosage: 15 MG, QD
     Dates: end: 20171103
  14. PROMAC [Concomitant]
     Active Substance: NITROFURANTOIN
     Dosage: 150 MG, QD
     Dates: start: 20171115, end: 20171202
  15. QVAR [Concomitant]
     Active Substance: BECLOMETHASONE DIPROPIONATE
     Dosage: 6 DF, QD
  16. URSO [Concomitant]
     Active Substance: URSODIOL
     Indication: HEPATIC ENZYME INCREASED
     Dosage: 300 MG, QD
     Dates: start: 20171120, end: 20180209
  17. BISOLVON [Concomitant]
     Active Substance: BROMHEXINE HYDROCHLORIDE
     Indication: SPUTUM RETENTION
     Dosage: 12 MG, QD
     Dates: start: 20171221, end: 20180209
  18. CODEINE PHOSPHATE [Concomitant]
     Active Substance: CODEINE PHOSPHATE
     Indication: COUGH
     Dosage: 60 MG, QD
     Dates: start: 20171205, end: 20180209
  19. LANDSEN [Concomitant]
     Active Substance: CLONAZEPAM
     Indication: INTENTION TREMOR
     Dosage: 1.5 MG, QD
     Dates: end: 20171103
  20. MEDICON [Concomitant]
     Active Substance: DEXTROMETHORPHAN HYDROBROMIDE
     Indication: COUGH
     Dosage: 90 MG, QD
     Dates: start: 20171214, end: 20180209
  21. POTASSIUM CHLORIDE. [Concomitant]
     Active Substance: POTASSIUM CHLORIDE
     Indication: HYPOKALAEMIA
     Dosage: 2 G, QD
     Dates: start: 20171216, end: 20180209
  22. LINZESS [Concomitant]
     Active Substance: LINACLOTIDE
     Indication: CONSTIPATION
     Dosage: 0.5 MG, QD
     Dates: start: 20171130, end: 20171202
  23. TRAMAL [Concomitant]
     Active Substance: TRAMADOL
     Indication: ANALGESIC THERAPY
     Dosage: 100 MG, QD
     Dates: start: 20171219
  24. ALLOID G [Concomitant]
     Active Substance: SODIUM ALGINATE
     Dosage: 30 ML, QD
     Dates: end: 20171202
  25. MIYA-BM [Concomitant]
     Active Substance: CLOSTRIDIUM BUTYRICUM SPORES STRAIN M-55
     Indication: CONSTIPATION
     Dosage: 2 DF, QD
     Dates: start: 20170118, end: 20180209
  26. GASCON [Concomitant]
     Active Substance: DIMETHICONE
     Indication: CONSTIPATION
     Dosage: 18 ML, QD
     Dates: start: 20171127, end: 20180209
  27. MAINTATE [Concomitant]
     Active Substance: BISOPROLOL FUMARATE
     Indication: HYPERTENSION
     Dosage: 0.625 MG, QD
     Dates: end: 20180209
  28. CIBENOL [Concomitant]
     Active Substance: CIFENLINE
     Indication: ARRHYTHMIA
     Dosage: 150 MG, QD
     Dates: start: 20171031, end: 20180209
  29. NALDEMEDINE TOSILATE [Concomitant]
     Active Substance: NALDEMEDINE TOSYLATE
     Indication: CONSTIPATION
     Dosage: 0.2 MG, QD
     Dates: start: 20171120, end: 20171121
  30. BELSOMRA [Concomitant]
     Active Substance: SUVOREXANT
     Indication: INSOMNIA
     Dosage: 15 MG, QD
     Dates: start: 20171211, end: 20180209

REACTIONS (1)
  - Pulmonary oedema [Recovered/Resolved with Sequelae]
